FAERS Safety Report 5993696-4 (Version None)
Quarter: 2008Q4

REPORT INFORMATION
  Report Type: 
  Country: None (occurrence: None)
  Receive Date: 20081212
  Receipt Date: 20081202
  Transmission Date: 20090506
  Serious: Yes (Hospitalization, Other)
  Sender: FDA-Public Use
  Company Number: US-AMGEN-QUU300629

PATIENT
  Sex: Female
  Weight: 76.4 kg

DRUGS (11)
  1. ENBREL [Suspect]
     Indication: RHEUMATOID ARTHRITIS
     Route: 058
     Dates: start: 20070827
  2. METHOTREXATE [Concomitant]
     Route: 048
     Dates: start: 20070816, end: 20080724
  3. ALEVE [Concomitant]
  4. TRICOR [Concomitant]
  5. ZYRTEC [Concomitant]
  6. ATENOLOL AND CHLORTHALIDONE [Concomitant]
  7. LISINOPRIL [Concomitant]
  8. OSCAL D [Concomitant]
  9. PRAVASTATIN SODIUM [Concomitant]
  10. FOLIC ACID [Concomitant]
  11. PREDNISONE TAB [Concomitant]
     Dates: end: 20071001

REACTIONS (12)
  - CATHETERISATION CARDIAC [None]
  - CHEST PAIN [None]
  - CHILLS [None]
  - CHRONIC OBSTRUCTIVE PULMONARY DISEASE [None]
  - DIARRHOEA [None]
  - DYSPNOEA [None]
  - FAECES DISCOLOURED [None]
  - IDIOPATHIC PULMONARY FIBROSIS [None]
  - LUNG NEOPLASM [None]
  - PNEUMONIA [None]
  - PYREXIA [None]
  - VOMITING [None]
